FAERS Safety Report 13531982 (Version 6)
Quarter: 2017Q3

REPORT INFORMATION
  Report Type: Report from Study
  Country: CA (occurrence: CA)
  Receive Date: 20170510
  Receipt Date: 20170725
  Transmission Date: 20171127
  Serious: Yes (Hospitalization, Other)
  Sender: FDA-Public Use
  Company Number: CA-GLAXOSMITHKLINE-CA2017GSK066023

PATIENT
  Age: 60 Year
  Sex: Female

DRUGS (1)
  1. MEPOLIZUMAB [Suspect]
     Active Substance: MEPOLIZUMAB
     Indication: ASTHMA
     Dosage: 100 MG, Z, MONTHLY
     Route: 042
     Dates: start: 20170405

REACTIONS (12)
  - Fall [Unknown]
  - Laceration [Unknown]
  - Myalgia [Unknown]
  - Viral infection [Unknown]
  - Balance disorder [Unknown]
  - Meningitis pneumococcal [Recovered/Resolved]
  - Oropharyngeal pain [Unknown]
  - Angina pectoris [Unknown]
  - Pyrexia [Unknown]
  - Movement disorder [Not Recovered/Not Resolved]
  - Influenza like illness [Unknown]
  - Fatigue [Unknown]

NARRATIVE: CASE EVENT DATE: 201704
